FAERS Safety Report 6269270-1 (Version None)
Quarter: 2009Q3

REPORT INFORMATION
  Report Type: 
  Country: None (occurrence: None)
  Receive Date: 20090715
  Receipt Date: 20090707
  Transmission Date: 20100115
  Serious: Yes (Hospitalization, Other)
  Sender: FDA-Public Use
  Company Number: US-WYE-H09543709

PATIENT
  Sex: Male
  Weight: 88.8 kg

DRUGS (14)
  1. BENEFIX [Suspect]
     Indication: HAEMOPHILIA
     Route: 042
     Dates: start: 20090528, end: 20090528
  2. BENEFIX [Suspect]
     Indication: HAEMORRHAGE
     Route: 042
     Dates: start: 20090529, end: 20090529
  3. BENEFIX [Suspect]
     Dosage: ^MAJOR^ AND ^MINOR^ DOSES SCHEDULED AROUND PROCEDURES
     Dates: start: 20090531, end: 20090605
  4. VICODIN [Concomitant]
     Indication: PAIN
     Dosage: 1 TABLET EVERY 4-6 HOURS AS NEED FOR PAIN
     Route: 048
  5. LEXAPRO [Concomitant]
     Route: 048
  6. NEXIUM [Concomitant]
     Route: 048
  7. AMICAR [Concomitant]
     Indication: EPISTAXIS
     Dosage: 500MG TABLETS, 5 TABLETS EVERY 4 HOURS FOR NOSEBLEEDS
     Route: 048
  8. ZITHROMAX [Concomitant]
     Dosage: 600MG- 2 TABLETS WEEKLY ON SATURDAY
  9. DIOVAN HCT [Concomitant]
     Dosage: 80-12.5MG DAILY
     Route: 048
  10. HYDROCHLOROTHIAZIDE [Concomitant]
     Route: 048
  11. AMBIEN [Concomitant]
     Dosage: 10MG AT BEDTIME
  12. TRUVADA [Concomitant]
     Dosage: 1 TABLET (200/300MG) ONCE DAILY
     Route: 048
  13. KALETRA [Concomitant]
     Indication: HIV INFECTION
     Dosage: 200-50 DOSE, 2 TABLETS EVERY 12 HOURS
     Route: 048
  14. BACTRIM DS [Concomitant]
     Dosage: 800-160MG DAILY
     Route: 048

REACTIONS (3)
  - CATHETER RELATED INFECTION [None]
  - STAPHYLOCOCCAL BACTERAEMIA [None]
  - STAPHYLOCOCCAL INFECTION [None]
